FAERS Safety Report 15232445 (Version 2)
Quarter: 2018Q3

REPORT INFORMATION
  Report Type: Spontaneous
  Country: IT (occurrence: IT)
  Receive Date: 20180802
  Receipt Date: 20180803
  Transmission Date: 20181010
  Serious: Yes (Life-Threatening)
  Sender: FDA-Public Use
  Company Number: IT-BAYER-2018-144627

PATIENT
  Age: 83 Year
  Sex: Female

DRUGS (6)
  1. CLEXANE [Interacting]
     Active Substance: ENOXAPARIN SODIUM
     Indication: BEDRIDDEN
     Dosage: 4000 KIU, UNK
     Route: 058
     Dates: start: 20180619, end: 20180625
  2. LYRICA [Concomitant]
     Active Substance: PREGABALIN
     Dosage: UNK
  3. OMEPRAZOLE. [Concomitant]
     Active Substance: OMEPRAZOLE
  4. LASIX + K [Concomitant]
     Active Substance: FUROSEMIDE\POTASSIUM CHLORIDE
  5. MOTILIUM [Concomitant]
     Active Substance: DOMPERIDONE
  6. CARDIOASPIRIN 100 MG [Suspect]
     Active Substance: ASPIRIN
     Indication: CEREBROVASCULAR ACCIDENT
     Dosage: 100 MG, UNK
     Route: 048

REACTIONS (5)
  - Melaena [Recovering/Resolving]
  - Labelled drug-disease interaction medication error [None]
  - Haematemesis [Recovering/Resolving]
  - Oesophageal ulcer [Recovering/Resolving]
  - Haemorrhagic anaemia [Recovering/Resolving]

NARRATIVE: CASE EVENT DATE: 20180625
